FAERS Safety Report 25361438 (Version 1)
Quarter: 2025Q2

REPORT INFORMATION
  Report Type: Spontaneous
  Country: US (occurrence: US)
  Receive Date: 20250527
  Receipt Date: 20250527
  Transmission Date: 20250716
  Serious: Yes (Other)
  Sender: ABBVIE
  Company Number: US-ABBVIE-6294617

PATIENT
  Age: 37 Year
  Sex: Female
  Weight: 95.254 kg

DRUGS (3)
  1. HUMIRA [Suspect]
     Active Substance: ADALIMUMAB
     Indication: Rheumatoid arthritis
     Route: 058
     Dates: start: 20231202, end: 20231202
  2. METHOTREXATE [Concomitant]
     Active Substance: METHOTREXATE
     Indication: Product used for unknown indication
  3. FOLIC ACID [Concomitant]
     Active Substance: FOLIC ACID
     Indication: Product used for unknown indication

REACTIONS (10)
  - Loss of consciousness [Recovering/Resolving]
  - Inappropriate sinus tachycardia [Recovering/Resolving]
  - Epilepsy [Recovering/Resolving]
  - Cerebral disorder [Recovering/Resolving]
  - Heart rate increased [Recovering/Resolving]
  - Supraventricular extrasystoles [Recovering/Resolving]
  - Blood glucose increased [Unknown]
  - Ventricular extrasystoles [Recovering/Resolving]
  - Arrhythmia [Recovering/Resolving]
  - Cardiac disorder [Recovering/Resolving]

NARRATIVE: CASE EVENT DATE: 20231212
